FAERS Safety Report 6744773 (Version 1)
Quarter: 2020Q3

REPORT INFORMATION
  Report Type: Report from Study
  Country: US (occurrence: US)
  Receive Date: 20080902
  Receipt Date: 20080902
  Transmission Date: 20201104
  Serious: Yes (Other)
  Sender: FDA-Public Use
  Company Number: US-ROCHE-582356

PATIENT
  Age: 67 Year
  Sex: Female

DRUGS (9)
  1. VITAMIN E [Concomitant]
     Active Substance: .ALPHA.-TOCOPHEROL
  2. ATACAND [Concomitant]
     Active Substance: CANDESARTAN CILEXETIL
     Dosage: DRUG REPORTED AS: ATACAN.
     Dates: start: 200803
  3. VITAMINS AND MINERALS [Concomitant]
     Dosage: DRUG REPORTED AS: DAILY VITAMINS/MINERAL SUPPLEMENTS.
  4. LYRICA [Concomitant]
     Active Substance: PREGABALIN
  5. ASPIRIN. [Concomitant]
     Active Substance: ASPIRIN
     Dosage: DRUG REPORTED AS: DAILY 81 ASPIRIN.
  6. CELEBREX [Concomitant]
     Active Substance: CELECOXIB
  7. UNSPECIFIED INGREDIENT [Concomitant]
     Active Substance: UNSPECIFIED INGREDIENT
  8. IBANDRONIC ACID. [Suspect]
     Active Substance: IBANDRONIC ACID
     Indication: PRODUCT USED FOR UNKNOWN INDICATION
     Route: 065
  9. SYNTHROID [Concomitant]
     Active Substance: LEVOTHYROXINE SODIUM

REACTIONS (1)
  - Cardiac flutter [Unknown]
